FAERS Safety Report 6195064-1 (Version None)
Quarter: 2009Q2

REPORT INFORMATION
  Report Type: 
  Country: None (occurrence: None)
  Receive Date: 20090514
  Receipt Date: 20090421
  Transmission Date: 20091009
  Serious: Yes (Hospitalization, Other)
  Sender: FDA-Public Use
  Company Number: JPI-P-003752

PATIENT
  Age: 37 Year
  Sex: Female

DRUGS (6)
  1. XYREM [Suspect]
     Indication: NARCOLEPSY
     Dosage: 4.5 GM (2.25 GM, 2 IN 1 D), ORAL, 6 GM, 1 D, ORAL, 7.5 GM, 1 D, ORAL, 9 GM, 1 D, ORAL
     Route: 048
     Dates: start: 20080424, end: 20080618
  2. XYREM [Suspect]
     Indication: NARCOLEPSY
     Dosage: 4.5 GM (2.25 GM, 2 IN 1 D), ORAL, 6 GM, 1 D, ORAL, 7.5 GM, 1 D, ORAL, 9 GM, 1 D, ORAL
     Route: 048
     Dates: start: 20080619, end: 20080709
  3. XYREM [Suspect]
     Indication: NARCOLEPSY
     Dosage: 4.5 GM (2.25 GM, 2 IN 1 D), ORAL, 6 GM, 1 D, ORAL, 7.5 GM, 1 D, ORAL, 9 GM, 1 D, ORAL
     Route: 048
     Dates: start: 20080710, end: 20080805
  4. XYREM [Suspect]
     Indication: NARCOLEPSY
     Dosage: 4.5 GM (2.25 GM, 2 IN 1 D), ORAL, 6 GM, 1 D, ORAL, 7.5 GM, 1 D, ORAL, 9 GM, 1 D, ORAL
     Route: 048
     Dates: start: 20080806
  5. DEXAMFETAMINE [Concomitant]
  6. REBOXETINE [Concomitant]

REACTIONS (3)
  - DYSPNOEA [None]
  - HALLUCINATION, AUDITORY [None]
  - SCHIZOPHRENIA [None]
